FAERS Safety Report 13690036 (Version 1)
Quarter: 2017Q2

REPORT INFORMATION
  Report Type: Spontaneous
  Country: US (occurrence: US)
  Receive Date: 20170626
  Receipt Date: 20170626
  Transmission Date: 20170830
  Serious: No
  Sender: FDA-Public Use
  Company Number: US-BAYER-2017-106336

PATIENT
  Age: 56 Year
  Sex: Male

DRUGS (10)
  1. HERBALIFE PRODUCTS [Concomitant]
     Active Substance: HERBALS
  2. VITAMIIN C [Concomitant]
     Active Substance: ASCORBIC ACID
  3. MIRALAX [Suspect]
     Active Substance: POLYETHYLENE GLYCOL 3350
     Indication: GASTROINTESTINAL DISORDER
     Route: 048
     Dates: start: 201703, end: 20170529
  4. CLONIDINE. [Concomitant]
     Active Substance: CLONIDINE
  5. PROSTAT [Concomitant]
     Active Substance: HERBALS\SAW PALMETTO
  6. LOSARTAN. [Concomitant]
     Active Substance: LOSARTAN
  7. HYDROCHLORZIDE [Concomitant]
     Active Substance: HYDROCHLOROTHIAZIDE
  8. METOPROLOL. [Concomitant]
     Active Substance: METOPROLOL
  9. HERBALIFE PRODUCTS [Concomitant]
     Active Substance: HERBALS
  10. MULTIVITAMIN [Concomitant]
     Active Substance: VITAMINS

REACTIONS (7)
  - Product use issue [Unknown]
  - Wrong technique in product usage process [Unknown]
  - Product use issue [None]
  - Inappropriate prescribing [Unknown]
  - Defaecation urgency [Recovered/Resolved]
  - Diarrhoea [Recovered/Resolved]
  - Blood pressure increased [Not Recovered/Not Resolved]

NARRATIVE: CASE EVENT DATE: 201703
